FAERS Safety Report 17651192 (Version 1)
Quarter: 2020Q2

REPORT INFORMATION
  Report Type: Spontaneous
  Country: CN (occurrence: CN)
  Receive Date: 20200408
  Receipt Date: 20200408
  Transmission Date: 20200713
  Serious: Yes (Life-Threatening, Hospitalization, Other)
  Sender: FDA-Public Use
  Company Number: CN-BAXTER-2020BAX007652

PATIENT
  Age: 38 Year
  Sex: Male
  Weight: 71 kg

DRUGS (15)
  1. VINCRISTINE SULFATE. [Suspect]
     Active Substance: VINCRISTINE SULFATE
     Indication: EMBRYONAL RHABDOMYOSARCOMA
     Dosage: FIRST COURSE OF VAC REGIMEN (ALTERNATING CHEMOTHERAPY), DAY 1
     Route: 042
     Dates: start: 20191118
  2. DOXORUBICIN HYDROCHLORIDE. [Suspect]
     Active Substance: DOXORUBICIN HYDROCHLORIDE
     Indication: EMBRYONAL RHABDOMYOSARCOMA
     Dosage: FIRST COURSE OF VAC REGIMEN (ALTERNATING CHEMOTHERAPY), DAY 1
     Route: 042
     Dates: start: 20191118
  3. ETOPOSIDE. [Suspect]
     Active Substance: ETOPOSIDE
     Indication: EMBRYONAL RHABDOMYOSARCOMA
     Dosage: FIRST COURSE OF IE REGIMEN (ALTERNATING CHEMOTHERAPY), DAY 1 TO DAY 5
     Route: 065
     Dates: start: 20191212, end: 20191216
  4. HOLOXAN [Suspect]
     Active Substance: IFOSFAMIDE
     Indication: EMBRYONAL RHABDOMYOSARCOMA
     Dosage: FIRST COURSE OF IE REGIMEN (ALTERNATING CHEMOTHERAPY), DAY 1 TO DAY 5
     Route: 065
     Dates: start: 20191212, end: 20191216
  5. DOXORUBICIN HYDROCHLORIDE. [Suspect]
     Active Substance: DOXORUBICIN HYDROCHLORIDE
     Indication: METASTASES TO PANCREAS
     Dosage: THIRD COURSE OF VAC + APATINIB REGIMEN, PALLIATIVE CHEMOTHERAPY, DAY 1
     Route: 042
     Dates: start: 20200212, end: 20200226
  6. ENDOXAN [Suspect]
     Active Substance: CYCLOPHOSPHAMIDE
     Indication: EMBRYONAL RHABDOMYOSARCOMA
     Dosage: FIRST COURSE OF VAC REGIMEN (ALTERNATING CHEMOTHERAPY), DAY 1
     Route: 041
     Dates: start: 20191118
  7. VINCRISTINE SULFATE. [Suspect]
     Active Substance: VINCRISTINE SULFATE
     Indication: METASTASES TO PANCREAS
     Dosage: THIRD COURSE OF VAC + APATINIB REGIMEN, PALLIATIVE CHEMOTHERAPY, DAY 1
     Route: 042
     Dates: start: 20200212, end: 20200226
  8. ENDOXAN [Suspect]
     Active Substance: CYCLOPHOSPHAMIDE
     Indication: METASTASES TO BONE
     Dosage: SECOND COURSE OF VAC REGIMEN
     Route: 041
     Dates: start: 20200110
  9. ETOPOSIDE. [Suspect]
     Active Substance: ETOPOSIDE
     Indication: METASTASES TO BONE
  10. HOLOXAN [Suspect]
     Active Substance: IFOSFAMIDE
     Indication: METASTASES TO PANCREAS
  11. DOXORUBICIN HYDROCHLORIDE. [Suspect]
     Active Substance: DOXORUBICIN HYDROCHLORIDE
     Indication: METASTASES TO BONE
     Dosage: SECOND COURSE OF VAC REGIMEN
     Route: 042
     Dates: start: 20200110
  12. ETOPOSIDE. [Suspect]
     Active Substance: ETOPOSIDE
     Indication: METASTASES TO PANCREAS
  13. ENDOXAN [Suspect]
     Active Substance: CYCLOPHOSPHAMIDE
     Indication: METASTASES TO PANCREAS
     Dosage: THIRD COURSE OF VAC + APATINIB REGIMEN, PALLIATIVE CHEMOTHERAPY, DAY 1
     Route: 041
     Dates: start: 20200212, end: 20200226
  14. HOLOXAN [Suspect]
     Active Substance: IFOSFAMIDE
     Indication: METASTASES TO BONE
  15. VINCRISTINE SULFATE. [Suspect]
     Active Substance: VINCRISTINE SULFATE
     Indication: METASTASES TO BONE
     Dosage: SECOND COURSE OF VAC REGIMEN
     Route: 042
     Dates: start: 20200110

REACTIONS (2)
  - Granulocytopenia [Recovering/Resolving]
  - Disease progression [Unknown]

NARRATIVE: CASE EVENT DATE: 20200110
